FAERS Safety Report 5988260-7 (Version None)
Quarter: 2008Q4

REPORT INFORMATION
  Report Type: 
  Country: None (occurrence: None)
  Receive Date: 20081204
  Receipt Date: 20081124
  Transmission Date: 20090506
  Serious: Yes (Hospitalization, Other)
  Sender: FDA-Public Use
  Company Number: 2008AP003236

PATIENT
  Age: 68 Year
  Sex: Male

DRUGS (2)
  1. LEFLUNOMIDE [Suspect]
     Indication: RHEUMATOID ARTHRITIS
  2. AZATHIOPRINE [Concomitant]

REACTIONS (7)
  - APHASIA [None]
  - CEREBROVASCULAR ACCIDENT [None]
  - GAIT SPASTIC [None]
  - HEMIPARESIS [None]
  - PARTIAL SEIZURES WITH SECONDARY GENERALISATION [None]
  - PROGRESSIVE MULTIFOCAL LEUKOENCEPHALOPATHY [None]
  - STATUS EPILEPTICUS [None]
